FAERS Safety Report 9715685 (Version 8)
Quarter: 2015Q1

REPORT INFORMATION
  Report Type: Spontaneous
  Country: FR (occurrence: FR)
  Receive Date: 20131127
  Receipt Date: 20150219
  Transmission Date: 20150721
  Serious: Yes (Other)
  Sender: FDA-Public Use
  Company Number: FR-JNJFOC-20131113164

PATIENT
  Age: 70 Year
  Sex: Female

DRUGS (3)
  1. RISPERDAL CONSTA [Suspect]
     Active Substance: RISPERIDONE
     Indication: SCHIZOPHRENIA
     Dosage: SINCE ABOUT 1 YEAR-ONGOING
     Route: 030
     Dates: start: 2012
  2. RISPERDAL CONSTA [Suspect]
     Active Substance: RISPERIDONE
     Indication: SCHIZOPHRENIA
     Route: 030
     Dates: start: 20140804
  3. RISPERDAL CONSTA [Suspect]
     Active Substance: RISPERIDONE
     Indication: SCHIZOPHRENIA
     Route: 030
     Dates: start: 2011

REACTIONS (12)
  - Tremor [Unknown]
  - Emotional distress [Unknown]
  - Musculoskeletal stiffness [Unknown]
  - Nervous system disorder [Unknown]
  - Insomnia [Unknown]
  - Vertigo [Unknown]
  - Logorrhoea [Unknown]
  - Gastrointestinal pain [Unknown]
  - Incoherent [Unknown]
  - Depression [Unknown]
  - Delusion [Unknown]
  - Muscle spasms [Unknown]

NARRATIVE: CASE EVENT DATE: 2012
